FAERS Safety Report 24329062 (Version 1)
Quarter: 2024Q3

REPORT INFORMATION
  Report Type: Report from Study
  Country: CA (occurrence: CA)
  Receive Date: 20240917
  Receipt Date: 20240917
  Transmission Date: 20241017
  Serious: Yes (Hospitalization, Other)
  Sender: GILEAD
  Company Number: CA-GLAXOSMITHKLINE-CA2023AMR078535

PATIENT
  Age: 41 Year
  Sex: Female

DRUGS (1)
  1. AMBRISENTAN [Suspect]
     Active Substance: AMBRISENTAN
     Indication: Pulmonary arterial hypertension
     Dosage: 10 MG, QD
     Route: 048
     Dates: start: 20211208

REACTIONS (4)
  - Lung transplant [Unknown]
  - Pruritus [Not Recovered/Not Resolved]
  - Papule [Unknown]
  - Skin irritation [Unknown]
